FAERS Safety Report 22288108 (Version 1)
Quarter: 2023Q2

REPORT INFORMATION
  Report Type: Spontaneous
  Country: US (occurrence: US)
  Receive Date: 20230505
  Receipt Date: 20230505
  Transmission Date: 20230722
  Serious: Yes (Hospitalization)
  Sender: FDA-Public Use
  Company Number: US-drreddys-LIT/USA/23/0161714

PATIENT
  Age: 30 Year
  Sex: Male

DRUGS (5)
  1. VALGANCICLOVIR HYDROCHLORIDE [Suspect]
     Active Substance: VALGANCICLOVIR HYDROCHLORIDE
     Indication: Cytomegalovirus viraemia
  2. METHYLPREDNISOLONE [Concomitant]
     Active Substance: METHYLPREDNISOLONE
     Indication: Swelling face
  3. EPINEPHRINE [Concomitant]
     Active Substance: EPINEPHRINE
     Indication: Swelling face
  4. PREDNISONE [Concomitant]
     Active Substance: PREDNISONE
     Indication: Swelling face
  5. DOXYCYCLINE [Concomitant]
     Active Substance: DOXYCYCLINE
     Indication: Swelling face

REACTIONS (4)
  - Kaposi^s sarcoma [Unknown]
  - Disease progression [Unknown]
  - Myelosuppression [Unknown]
  - Pancytopenia [Unknown]
